FAERS Safety Report 4381595-3 (Version None)
Quarter: 2004Q2

REPORT INFORMATION
  Report Type: 
  Country: None (occurrence: None)
  Receive Date: 20040621
  Receipt Date: 20040614
  Transmission Date: 20050107
  Serious: Yes (Hospitalization)
  Sender: FDA-Public Use
  Company Number: PHBS2004IN07950

PATIENT
  Age: 22 Year
  Sex: Female
  Weight: 55 kg

DRUGS (4)
  1. TRIOPTAL [Suspect]
     Indication: EPILEPSY
     Dosage: 300 MG, UNK
     Route: 048
     Dates: start: 20040501, end: 20040601
  2. EPTOIN [Concomitant]
  3. FERUM [Concomitant]
  4. FOLVITE [Concomitant]
     Dosage: UNK, BID

REACTIONS (3)
  - ABORTION INCOMPLETE [None]
  - CONVULSION [None]
  - DRUG EXPOSURE DURING PREGNANCY [None]
